FAERS Safety Report 9401331 (Version 1)
Quarter: 2013Q3

REPORT INFORMATION
  Report Type: Spontaneous
  Country: ID (occurrence: ID)
  Receive Date: 20130715
  Receipt Date: 20130715
  Transmission Date: 20140515
  Serious: Yes (Death, Life-Threatening, Hospitalization, Other)
  Sender: FDA-Public Use
  Company Number: ID-ASTRAZENECA-2013SE52074

PATIENT
  Age: 57 Year
  Sex: Male

DRUGS (11)
  1. BRILINTA [Suspect]
     Dosage: 180 MG LOADING DOSE
     Route: 048
     Dates: start: 20130701
  2. BRILINTA [Suspect]
     Route: 048
  3. ISOSORBIDE DINITRATE [Concomitant]
  4. AMLODIPINE [Concomitant]
  5. SIMVASTATIN [Concomitant]
  6. ASPIRIN [Concomitant]
     Dosage: 320 MG LOADING DOSE
  7. ASPIRIN [Concomitant]
  8. LAXADINE [Concomitant]
  9. DIAZEPAM [Concomitant]
  10. ESOMEPRAZOLE [Concomitant]
     Dosage: DAILY
  11. CLOPIDOGREL [Concomitant]

REACTIONS (7)
  - Thrombosis [Fatal]
  - Loss of consciousness [Unknown]
  - Cardiac arrest [Unknown]
  - Ventricular tachycardia [Unknown]
  - Chest pain [Unknown]
  - Nausea [Unknown]
  - Intentional drug misuse [Unknown]
